FAERS Safety Report 18298861 (Version 1)
Quarter: 2020Q3

REPORT INFORMATION
  Report Type: Spontaneous
  Country: CN (occurrence: CN)
  Receive Date: 20200922
  Receipt Date: 20200922
  Transmission Date: 20201103
  Serious: Yes (Disabling, Other)
  Sender: FDA-Public Use
  Company Number: CN-SA-2020SA255247

PATIENT

DRUGS (12)
  1. TIZANIDINE HYDROCHLORIDE. [Suspect]
     Active Substance: TIZANIDINE HYDROCHLORIDE
     Indication: RUPTURED CEREBRAL ANEURYSM
     Dosage: 2 MG, TID
     Route: 050
     Dates: start: 20200825, end: 20200902
  2. HYDROCHLOROTHIAZIDE/LOSARTAN POTASSIUM [Suspect]
     Active Substance: HYDROCHLOROTHIAZIDE\LOSARTAN POTASSIUM
     Indication: HYPERTENSION
     Dosage: 1 DF, QD
     Route: 050
     Dates: start: 20200821, end: 20200830
  3. PLAVIX [Suspect]
     Active Substance: CLOPIDOGREL BISULFATE
     Indication: SUBARACHNOID HAEMORRHAGE
  4. NIMODIPINE. [Suspect]
     Active Substance: NIMODIPINE
     Indication: RUPTURED CEREBRAL ANEURYSM
     Dosage: 40 MG, TID
     Route: 050
     Dates: start: 20200823, end: 20200902
  5. AMLODIPINE BESILATE [Suspect]
     Active Substance: AMLODIPINE BESYLATE
     Indication: HYPERTENSION
     Dosage: 5 MG, QD
     Route: 050
     Dates: start: 20200816, end: 20200902
  6. ASPIRIN [ACETYLSALICYLIC ACID] [Concomitant]
     Active Substance: ASPIRIN
     Indication: SUBARACHNOID HAEMORRHAGE
  7. ASPIRIN [ACETYLSALICYLIC ACID] [Concomitant]
     Active Substance: ASPIRIN
     Indication: RUPTURED CEREBRAL ANEURYSM
     Dosage: 0.1 G, QD
     Route: 050
     Dates: start: 20200816, end: 20200902
  8. PLAVIX [Suspect]
     Active Substance: CLOPIDOGREL BISULFATE
     Indication: RUPTURED CEREBRAL ANEURYSM
     Dosage: 75 MG, QD
     Route: 050
     Dates: start: 20200816, end: 20200902
  9. NIMODIPINE. [Suspect]
     Active Substance: NIMODIPINE
     Indication: SUBARACHNOID HAEMORRHAGE
  10. NIMODIPINE. [Suspect]
     Active Substance: NIMODIPINE
     Indication: CEREBRAL VASODILATATION
  11. TIZANIDINE HYDROCHLORIDE. [Suspect]
     Active Substance: TIZANIDINE HYDROCHLORIDE
     Indication: SUBARACHNOID HAEMORRHAGE
  12. LEVOFLOXACIN LACTATE AND SODIUM CHLORIDE [Suspect]
     Active Substance: LEVOFLOXACIN LACTATE
     Indication: PNEUMONIA
     Dosage: 0.5 G, QD
     Route: 041
     Dates: start: 20200827, end: 20200831

REACTIONS (3)
  - Hepatic function abnormal [Not Recovered/Not Resolved]
  - Acute kidney injury [Not Recovered/Not Resolved]
  - Hyperuricaemia [Not Recovered/Not Resolved]

NARRATIVE: CASE EVENT DATE: 20200825
